FAERS Safety Report 6339183-5 (Version None)
Quarter: 2009Q3

REPORT INFORMATION
  Report Type: 
  Country: None (occurrence: None)
  Receive Date: 20090903
  Receipt Date: 20090901
  Transmission Date: 20100115
  Serious: Yes (Hospitalization, Other)
  Sender: FDA-Public Use
  Company Number: US-RB-020097-09

PATIENT
  Sex: Male

DRUGS (3)
  1. SUBOXONE [Suspect]
     Indication: DRUG USE FOR UNKNOWN INDICATION
     Dosage: DOSE AND FREQUENCY UNKNOWN
     Route: 060
     Dates: start: 20040101, end: 20060101
  2. SUBOXONE [Suspect]
     Dosage: DOSES BEING TAPERED DOWN
     Route: 060
     Dates: start: 20060101
  3. SUBOXONE [Suspect]
     Route: 060

REACTIONS (1)
  - CONVULSION [None]
